FAERS Safety Report 16624575 (Version 2)
Quarter: 2019Q3

REPORT INFORMATION
  Report Type: Report from Study
  Country: JP (occurrence: JP)
  Receive Date: 20190724
  Receipt Date: 20190930
  Transmission Date: 20191004
  Serious: Yes (Hospitalization)
  Sender: FDA-Public Use
  Company Number: JP-ACTELION-A-CH2019-186329

PATIENT
  Age: 75 Year
  Sex: Female

DRUGS (23)
  1. TRACLEER [Suspect]
     Active Substance: BOSENTAN
     Dosage: 62.5 MG, BID
     Route: 048
     Dates: start: 20171107, end: 20171114
  2. TAKEPRON [Concomitant]
     Active Substance: LANSOPRAZOLE
  3. LUPRAC [Concomitant]
     Active Substance: TORSEMIDE
  4. TRACLEER [Suspect]
     Active Substance: BOSENTAN
     Dosage: 125 MG, BID
     Route: 048
     Dates: start: 20171115, end: 20171127
  5. BERAPROST NA [Concomitant]
     Active Substance: BERAPROST SODIUM
  6. GEBEN [Concomitant]
     Active Substance: SILVER SULFADIAZINE
  7. HIRUDOID [Concomitant]
     Active Substance: GLYCOSAMINOGLYCANS
  8. ADCIRCA [Suspect]
     Active Substance: TADALAFIL
     Indication: SKIN ULCER
     Dosage: 20 MG, QD
     Route: 048
     Dates: start: 20170619, end: 20170921
  9. AMLODIPINE [Concomitant]
     Active Substance: AMLODIPINE BESYLATE
  10. CRESTOR [Concomitant]
     Active Substance: ROSUVASTATIN CALCIUM
  11. LIMAPROST [Concomitant]
     Active Substance: LIMAPROST
  12. SARPOGRELATE [Concomitant]
     Active Substance: SARPOGRELATE
  13. TRACLEER [Suspect]
     Active Substance: BOSENTAN
     Dosage: 62.5 MG, BID
     Route: 048
     Dates: start: 20170713, end: 20171005
  14. TRACLEER [Suspect]
     Active Substance: BOSENTAN
     Dosage: 62.5 MG, BID
     Route: 048
     Dates: start: 20171128, end: 20180112
  15. MOSAPRIDE [Concomitant]
     Active Substance: MOSAPRIDE
  16. MAINTATE [Concomitant]
     Active Substance: BISOPROLOL FUMARATE
  17. TRACLEER [Suspect]
     Active Substance: BOSENTAN
     Indication: SCLERODERMA ASSOCIATED DIGITAL ULCER
     Dosage: 31.25 MG, BID
     Route: 048
     Dates: start: 20170601, end: 20170712
  18. PREDONINE [Concomitant]
     Active Substance: PREDNISOLONE
  19. FIBLAST [Concomitant]
  20. CARELOAD [Concomitant]
     Active Substance: BERAPROST SODIUM
  21. TOCOPHEROL [Concomitant]
     Active Substance: TOCOPHEROL
  22. URSO [Concomitant]
     Active Substance: URSODIOL
  23. OXYGEN. [Concomitant]
     Active Substance: OXYGEN

REACTIONS (6)
  - Dyspnoea [Recovering/Resolving]
  - Pleural effusion [Recovering/Resolving]
  - Pulmonary hypertension [Unknown]
  - Osteomyelitis [Recovering/Resolving]
  - Pneumonia [Recovering/Resolving]
  - Oedema [Recovering/Resolving]

NARRATIVE: CASE EVENT DATE: 20170602
